FAERS Safety Report 5204700-5 (Version None)
Quarter: 2007Q1

REPORT INFORMATION
  Report Type: 
  Country: None (occurrence: None)
  Receive Date: 20070110
  Receipt Date: 20060726
  Transmission Date: 20070707
  Serious: No
  Sender: FDA-Public Use
  Company Number: US-BRISTOL-MYERS SQUIBB COMPANY-13416755

PATIENT
  Age: 43 Year
  Sex: Female
  Weight: 104 kg

DRUGS (6)
  1. ABILIFY [Suspect]
     Indication: BIPOLAR DISORDER
     Route: 048
     Dates: start: 20050725
  2. ZOLOFT [Concomitant]
  3. ESKALITH CR [Concomitant]
  4. MULTI-VITAMIN [Concomitant]
  5. CALCIUM [Concomitant]
  6. COGENTIN [Concomitant]

REACTIONS (3)
  - PSYCHOMOTOR HYPERACTIVITY [None]
  - TARDIVE DYSKINESIA [None]
  - TREMOR [None]
